FAERS Safety Report 10917727 (Version 1)
Quarter: 2015Q1

REPORT INFORMATION
  Report Type: Spontaneous
  Country: US (occurrence: US)
  Receive Date: 20150316
  Receipt Date: 20150316
  Transmission Date: 20150721
  Serious: No
  Sender: FDA-Public Use
  Company Number: US-GLAXOSMITHKLINE-US2015029046

PATIENT
  Age: 69 Year
  Sex: Male

DRUGS (5)
  1. NICODERM CQ [Suspect]
     Active Substance: NICOTINE
     Indication: SMOKING CESSATION THERAPY
     Dosage: 7 MG, UNK
  2. NICORETTE CINNAMON SURGE [Suspect]
     Active Substance: NICOTINE
     Indication: SMOKING CESSATION THERAPY
     Dates: start: 20150211
  3. NICODERM CQ [Suspect]
     Active Substance: NICOTINE
     Indication: SMOKING CESSATION THERAPY
     Dosage: 21 MG, UNK
  4. NICODERM CQ [Suspect]
     Active Substance: NICOTINE
     Dosage: 21 MG, UNK
  5. NICODERM CQ [Suspect]
     Active Substance: NICOTINE
     Indication: SMOKING CESSATION THERAPY
     Dosage: 14 MG, UNK

REACTIONS (2)
  - Drug ineffective [Unknown]
  - Nicotine dependence [Not Recovered/Not Resolved]
